FAERS Safety Report 15765223 (Version 1)
Quarter: 2018Q4

REPORT INFORMATION
  Report Type: Report from Study
  Country: US (occurrence: US)
  Receive Date: 20181227
  Receipt Date: 20181227
  Transmission Date: 20190205
  Serious: Yes (Other)
  Sender: FDA-Public Use
  Company Number: US-SA-2018SA341428

PATIENT
  Age: 37 Year
  Sex: Female

DRUGS (2)
  1. ENOXAPARIN SODIUM. [Suspect]
     Active Substance: ENOXAPARIN SODIUM
     Indication: COAGULOPATHY
     Dosage: 30 MG, QD
     Route: 058
     Dates: start: 201708
  2. ENOXAPARIN SODIUM. [Suspect]
     Active Substance: ENOXAPARIN SODIUM
     Indication: COAGULOPATHY

REACTIONS (8)
  - Off label use [Unknown]
  - Injection site urticaria [Not Recovered/Not Resolved]
  - Abortion spontaneous [Recovered/Resolved]
  - Coagulopathy [Not Recovered/Not Resolved]
  - White blood cell count increased [Unknown]
  - Injection site haemorrhage [Recovered/Resolved]
  - Drug hypersensitivity [Not Recovered/Not Resolved]
  - Exposure during pregnancy [Unknown]

NARRATIVE: CASE EVENT DATE: 201710
